FAERS Safety Report 7680201-X (Version None)
Quarter: 2011Q3

REPORT INFORMATION
  Report Type: 
  Country: None (occurrence: None)
  Receive Date: 20110812
  Receipt Date: 20110801
  Transmission Date: 20111222
  Serious: Yes (Other)
  Sender: FDA-Public Use
  Company Number: US-ROCHE-795658

PATIENT
  Sex: Female

DRUGS (1)
  1. BONIVA [Suspect]
     Route: 065

REACTIONS (4)
  - BONE DENSITY DECREASED [None]
  - WRIST FRACTURE [None]
  - SPINAL COLUMN INJURY [None]
  - BONE NEOPLASM [None]
